FAERS Safety Report 14511094 (Version 4)
Quarter: 2018Q4

REPORT INFORMATION
  Report Type: Spontaneous
  Country: US (occurrence: US)
  Receive Date: 20180209
  Receipt Date: 20181201
  Transmission Date: 20190204
  Serious: Yes (Hospitalization, Other)
  Sender: FDA-Public Use
  Company Number: US-PFIZER INC-2018060122

PATIENT
  Age: 69 Year
  Sex: Female

DRUGS (8)
  1. LYRICA [Suspect]
     Active Substance: PREGABALIN
     Indication: RADICULOPATHY
     Dosage: 50 MG X2
  2. LYRICA [Suspect]
     Active Substance: PREGABALIN
     Dosage: 200 MG, 2X/DAY [TAKE 1 CAPSULE TWICE A DAY FOR 30 DAYS]
     Route: 048
  3. ZOLOFT [Concomitant]
     Active Substance: SERTRALINE HYDROCHLORIDE
     Dosage: 50 MG, UNK
     Dates: start: 2017
  4. PROBIOTIC [Concomitant]
     Active Substance: PROBIOTICS NOS
     Dosage: UNK
     Dates: start: 2017
  5. LYRICA [Suspect]
     Active Substance: PREGABALIN
     Dosage: 300 MG, 2X/DAY, (1 CAPSULE TWICE A DAY)
     Route: 048
  6. BLACK COHOSH [Concomitant]
     Active Substance: BLACK COHOSH
     Dosage: 500 MG, UNK
     Dates: start: 1999
  7. LYRICA [Suspect]
     Active Substance: PREGABALIN
     Dosage: 100 MG X2
  8. BUPROPION XL [Concomitant]
     Active Substance: BUPROPION
     Dosage: UNK (300)
     Dates: start: 2015

REACTIONS (1)
  - Nephrolithiasis [Recovered/Resolved]
